FAERS Safety Report 14239333 (Version 1)
Quarter: 2017Q4

REPORT INFORMATION
  Report Type: Spontaneous
  Country: US (occurrence: US)
  Receive Date: 20171130
  Receipt Date: 20171130
  Transmission Date: 20180321
  Serious: Yes (Other)
  Sender: FDA-Public Use
  Company Number: US-PURDUE PHARMA-USA-2017-0141748

PATIENT
  Sex: Female
  Weight: 72.11 kg

DRUGS (22)
  1. MS CONTIN [Suspect]
     Active Substance: MORPHINE SULFATE
     Indication: POLYMYALGIA RHEUMATICA
     Dosage: 30 MG, AM
     Route: 048
     Dates: start: 20170913, end: 20171012
  2. OXYCODONE/ ACETAMINOPHEN TABLETS [Suspect]
     Active Substance: ACETAMINOPHEN\OXYCODONE HYDROCHLORIDE
     Indication: PAIN
     Dosage: 5 MG, QID PRN
     Route: 048
     Dates: start: 20170913, end: 20171012
  3. FOLIC ACID. [Suspect]
     Active Substance: FOLIC ACID
     Indication: DEPRESSION
     Dosage: 2 MG, DAILY
     Route: 048
  4. LOSARTAN. [Suspect]
     Active Substance: LOSARTAN
     Indication: HYPERTENSION
     Dosage: 100 MG, DAILY
     Route: 048
  5. MEDROL [Suspect]
     Active Substance: METHYLPREDNISOLONE
     Indication: SCIATICA
     Dosage: 4 MG, UNK
     Route: 048
  6. PREDNISONE. [Suspect]
     Active Substance: PREDNISONE
     Indication: POLYMYALGIA RHEUMATICA
     Dosage: 10 MG, DAILY
     Route: 048
  7. ATENOLOL. [Suspect]
     Active Substance: ATENOLOL
     Indication: HYPERTENSION
     Dosage: 50 MG, DAILY
     Route: 048
  8. LYRICA [Suspect]
     Active Substance: PREGABALIN
     Dosage: 75 MG, BID
     Route: 048
     Dates: end: 20171023
  9. CINNAMON                           /01647501/ [Suspect]
     Active Substance: CINNAMON
     Indication: PRODUCT USED FOR UNKNOWN INDICATION
     Dosage: 1000 MG, DAILY
     Route: 048
  10. LYRICA [Suspect]
     Active Substance: PREGABALIN
     Indication: FIBROMYALGIA
     Dosage: 150 MG, BID
     Route: 048
  11. OXYCONTIN [Suspect]
     Active Substance: OXYCODONE HYDROCHLORIDE
     Indication: PAIN
     Dosage: UNK
     Route: 048
  12. CALCIUM 500+D3 [Suspect]
     Active Substance: CALCIUM CARBONATE\CHOLECALCIFEROL
     Indication: PRODUCT USED FOR UNKNOWN INDICATION
     Dosage: 1 TABLET, DAILY
     Route: 048
  13. LYRICA [Suspect]
     Active Substance: PREGABALIN
     Indication: PAIN
     Dosage: 100 MG, TID
     Route: 048
     Dates: start: 20171023
  14. ASPIRIN. [Suspect]
     Active Substance: ASPIRIN
     Indication: PRODUCT USED FOR UNKNOWN INDICATION
     Dosage: 81 MG, DAILY
     Route: 048
  15. CHROMIUM PICOLINATE [Suspect]
     Active Substance: CHROMIUM PICOLINATE
     Indication: PRODUCT USED FOR UNKNOWN INDICATION
     Dosage: 500 MG, DAILY
     Route: 048
  16. FISH OIL [Suspect]
     Active Substance: FISH OIL
     Indication: PRODUCT USED FOR UNKNOWN INDICATION
     Dosage: 1000 MG, DAILY
     Route: 048
  17. LEVOTHYROXINE. [Suspect]
     Active Substance: LEVOTHYROXINE
     Indication: HYPOTHYROIDISM
     Dosage: 175 MG, DAILY
     Route: 048
  18. PREDNISONE. [Suspect]
     Active Substance: PREDNISONE
     Dosage: 5 MG, DAILY
     Route: 048
  19. VITAMIN B [Suspect]
     Active Substance: VITAMIN B
     Indication: PRODUCT USED FOR UNKNOWN INDICATION
     Dosage: 1 TABLET, DAILY
     Route: 048
  20. MS CONTIN [Suspect]
     Active Substance: MORPHINE SULFATE
     Dosage: 15 MG, PM
     Route: 048
     Dates: start: 20170913, end: 20171012
  21. VITAMIN D3 [Suspect]
     Active Substance: CHOLECALCIFEROL
     Indication: VITAMIN D DEFICIENCY
     Dosage: 5000 IU, DAILY
     Route: 048
  22. VITAMIN D3 [Suspect]
     Active Substance: CHOLECALCIFEROL
     Dosage: 2000 IU, DAILY
     Route: 048

REACTIONS (17)
  - Chronic kidney disease [Unknown]
  - Hypothyroidism [Unknown]
  - Myalgia [Unknown]
  - Arthralgia [Unknown]
  - Back pain [Unknown]
  - Anxiety [Unknown]
  - Type IIa hyperlipidaemia [Unknown]
  - Hyperlipidaemia [Unknown]
  - Hypertriglyceridaemia [Unknown]
  - Polymyalgia rheumatica [Unknown]
  - Headache [Unknown]
  - Fatigue [Unknown]
  - Hypertension [Unknown]
  - Diabetes mellitus [Unknown]
  - Iron deficiency anaemia [Unknown]
  - Pain [Unknown]
  - Depression [Unknown]
